FAERS Safety Report 23195251 (Version 1)
Quarter: 2023Q4

REPORT INFORMATION
  Report Type: Spontaneous
  Country: AU (occurrence: AU)
  Receive Date: 20231117
  Receipt Date: 20231117
  Transmission Date: 20240110
  Serious: No
  Sender: FDA-Public Use
  Company Number: AU-ALKEM LABORATORIES LIMITED-AU-ALKEM-2023-01961

PATIENT
  Age: 17 Year
  Sex: Male

DRUGS (5)
  1. OLANZAPINE [Suspect]
     Active Substance: OLANZAPINE
     Indication: Schizophrenia
     Dosage: 40 MILLIGRAM, QD LONG ACTING INJECTION
     Route: 048
  2. PALIPERIDONE PALMITATE [Suspect]
     Active Substance: PALIPERIDONE PALMITATE
     Indication: Schizophrenia
     Dosage: 100 MILLIGRAM (MONTHLY) (LONG ACTING)
     Route: 030
  3. PALIPERIDONE PALMITATE [Suspect]
     Active Substance: PALIPERIDONE PALMITATE
     Dosage: 150 MILLIGRAM (MONTHLY) (LONG ACTING)
     Route: 030
  4. PALIPERIDONE PALMITATE [Suspect]
     Active Substance: PALIPERIDONE PALMITATE
     Dosage: 150 MILLIGRAM (MONTHLY) (RESTARTED DOSE) (LONG ACTING)
     Route: 030
  5. ZUCLOPENTHIXOL ACETATE [Concomitant]
     Active Substance: ZUCLOPENTHIXOL ACETATE
     Indication: Schizophrenia
     Dosage: 400 MILLIGRAM  FORTNIGHTLY
     Route: 030

REACTIONS (1)
  - Drug ineffective [Recovering/Resolving]
